FAERS Safety Report 10022082 (Version 2)
Quarter: 2014Q2

REPORT INFORMATION
  Report Type: Spontaneous
  Country: US (occurrence: US)
  Receive Date: 20140319
  Receipt Date: 20140530
  Transmission Date: 20141212
  Serious: Yes (Other)
  Sender: FDA-Public Use
  Company Number: US-GLAXOSMITHKLINE-A1064536A

PATIENT
  Age: 53 Year
  Sex: Female

DRUGS (12)
  1. ADVAIR [Suspect]
     Indication: CHRONIC OBSTRUCTIVE PULMONARY DISEASE
     Dosage: 2PUFF TWICE PER DAY
     Route: 055
  2. ANTIBIOTICS [Suspect]
  3. PRAVASTATIN [Concomitant]
  4. CHLOROTHIAZIDE [Concomitant]
  5. ASPIRIN [Concomitant]
  6. ESTRADIOL [Concomitant]
  7. ISOSORBIDE [Concomitant]
  8. GABAPENTIN [Concomitant]
  9. POTASSIUM [Concomitant]
  10. VITAMINS [Concomitant]
  11. ALLERGY MEDICATION [Concomitant]
  12. MULTIPLE MEDICATIONS [Concomitant]

REACTIONS (12)
  - Escherichia infection [Recovering/Resolving]
  - Diverticulum [Recovering/Resolving]
  - Polyp [Recovering/Resolving]
  - Polypectomy [Recovering/Resolving]
  - Gastrooesophageal reflux disease [Recovering/Resolving]
  - Duodenitis [Recovering/Resolving]
  - Gastritis [Recovering/Resolving]
  - Fatigue [Recovering/Resolving]
  - Malaise [Recovering/Resolving]
  - Impaired driving ability [Recovering/Resolving]
  - Drug administration error [Unknown]
  - Gallbladder operation [Recovered/Resolved]
